FAERS Safety Report 11123687 (Version 2)
Quarter: 2015Q3

REPORT INFORMATION
  Report Type: Spontaneous
  Country: JP (occurrence: JP)
  Receive Date: 20150519
  Receipt Date: 20150806
  Transmission Date: 20151125
  Serious: Yes (Other)
  Sender: FDA-Public Use
  Company Number: PHJP2015JP006635

PATIENT
  Age: 88 Year
  Sex: Female

DRUGS (1)
  1. TEGRETOL [Suspect]
     Active Substance: CARBAMAZEPINE
     Indication: SEIZURE
     Dosage: 200 MG, BID
     Route: 048

REACTIONS (4)
  - Concomitant disease progression [Unknown]
  - Bile duct cancer [Unknown]
  - Dysphagia [Unknown]
  - Metastases to central nervous system [Unknown]
